FAERS Safety Report 24189962 (Version 1)
Quarter: 2024Q3

REPORT INFORMATION
  Report Type: Spontaneous
  Country: US (occurrence: US)
  Receive Date: 20240808
  Receipt Date: 20240808
  Transmission Date: 20241017
  Serious: Yes (Hospitalization, Other)
  Sender: BIOVITRUM
  Company Number: US-BIOVITRUM-2024-US-010686

PATIENT
  Age: 48 Year
  Sex: Female

DRUGS (1)
  1. DOPTELET [Suspect]
     Active Substance: AVATROMBOPAG MALEATE
     Indication: Platelet count decreased
     Dosage: DAILY
     Route: 048
     Dates: start: 202310

REACTIONS (6)
  - Infection [Unknown]
  - Diverticulitis [Unknown]
  - Haemorrhoids [Unknown]
  - Peritonitis [Unknown]
  - Constipation [Unknown]
  - Intentional product misuse [Unknown]

NARRATIVE: CASE EVENT DATE: 20231001
